FAERS Safety Report 7307453-X (Version None)
Quarter: 2011Q1

REPORT INFORMATION
  Report Type: 
  Country: None (occurrence: None)
  Receive Date: 20110223
  Receipt Date: 20110210
  Transmission Date: 20110831
  Serious: Yes (Hospitalization)
  Sender: FDA-Public Use
  Company Number: FR-PFIZER INC-2011029929

PATIENT
  Age: 4 Year
  Sex: Female

DRUGS (2)
  1. SOMATROPIN [Suspect]
     Indication: GROWTH HORMONE DEFICIENCY
     Dosage: 3.5 MG, WEEKLY (INTAKE 7DAYS/7)
     Dates: start: 20090918
  2. LEVOTHYROX [Concomitant]
     Dosage: 37.5 UG, UNK
     Route: 048

REACTIONS (3)
  - NASOPHARYNGITIS [None]
  - OTITIS MEDIA [None]
  - SNORING [None]
